FAERS Safety Report 8943947 (Version 1)
Quarter: 2012Q4

REPORT INFORMATION
  Report Type: 
  Country: US (occurrence: US)
  Receive Date: 20121204
  Receipt Date: 20121204
  Transmission Date: 20130627
  Serious: No
  Sender: FDA-Public Use
  Company Number: US-ASTRAZENECA-2010SE15995

PATIENT
  Age: 48 Year
  Sex: Female

DRUGS (5)
  1. NEXIUM [Suspect]
     Route: 048
  2. NEXIUM [Suspect]
     Route: 048
  3. SYMBICORT PMDI [Suspect]
     Dosage: UNKNOWN
     Route: 055
  4. PREVACID [Concomitant]
  5. TUMS [Concomitant]

REACTIONS (4)
  - Dyspnoea [Unknown]
  - Malaise [Unknown]
  - Drug ineffective [Unknown]
  - Intentional drug misuse [Unknown]
